FAERS Safety Report 7191820-1 (Version None)
Quarter: 2010Q4

REPORT INFORMATION
  Report Type: 
  Country: None (occurrence: None)
  Receive Date: 20101223
  Receipt Date: 20101209
  Transmission Date: 20110411
  Serious: Yes (Hospitalization, Other)
  Sender: FDA-Public Use
  Company Number: PHHY2010US78968

PATIENT
  Age: 63 Year
  Sex: Female

DRUGS (3)
  1. DEFERASIROX [Suspect]
     Indication: HEREDITARY HAEMOCHROMATOSIS
     Dosage: 500 MG, TID
  2. LISINOPRIL [Concomitant]
  3. ESTROGEN NOS [Concomitant]

REACTIONS (21)
  - ABDOMINAL PAIN [None]
  - ASCITES [None]
  - BLOOD PRESSURE DECREASED [None]
  - CHROMATURIA [None]
  - CONFUSIONAL STATE [None]
  - DIARRHOEA [None]
  - ENTERAL NUTRITION [None]
  - FATIGUE [None]
  - HAEMOGLOBIN DECREASED [None]
  - HEPATIC FIBROSIS [None]
  - HEPATIC STEATOSIS [None]
  - HEPATITIS ACUTE [None]
  - HEPATOTOXICITY [None]
  - INFLAMMATION [None]
  - INTERNATIONAL NORMALISED RATIO INCREASED [None]
  - JAUNDICE [None]
  - NAUSEA [None]
  - OCULAR ICTERUS [None]
  - RENAL FAILURE ACUTE [None]
  - WHITE BLOOD CELL COUNT INCREASED [None]
  - YELLOW SKIN [None]
